FAERS Safety Report 19512293 (Version 1)
Quarter: 2021Q3

REPORT INFORMATION
  Report Type: Spontaneous
  Country: NL (occurrence: NL)
  Receive Date: 20210709
  Receipt Date: 20210709
  Transmission Date: 20211014
  Serious: Yes (Death, Hospitalization)
  Sender: FDA-Public Use
  Company Number: NL-ELI_LILLY_AND_COMPANY-NL202107002126

PATIENT
  Sex: Female
  Weight: 58 kg

DRUGS (1)
  1. FORSTEO 250UG/ML [Suspect]
     Active Substance: TERIPARATIDE
     Indication: OSTEOPOROSIS
     Dosage: 1 X PER DAG 0,08 MILLILITER
     Route: 065
     Dates: start: 20190606

REACTIONS (2)
  - Pulmonary oedema [Unknown]
  - Death [Fatal]
